FAERS Safety Report 9587049 (Version 1)
Quarter: 2013Q4

REPORT INFORMATION
  Report Type: Spontaneous
  Country: US (occurrence: US)
  Receive Date: 20131003
  Receipt Date: 20131003
  Transmission Date: 20140711
  Serious: Yes (Death, Other)
  Sender: FDA-Public Use
  Company Number: US-ASTRAZENECA-2013SE72544

PATIENT
  Age: 769 Month
  Sex: Female

DRUGS (7)
  1. NEXIUM [Suspect]
     Route: 048
  2. XALKORI [Suspect]
     Indication: BLOOD ALKALINE PHOSPHATASE
     Route: 048
     Dates: start: 20110128, end: 20120331
  3. XALKORI [Suspect]
     Indication: NON-SMALL CELL LUNG CANCER
     Route: 048
     Dates: start: 20110128, end: 20120331
  4. XALKORI [Suspect]
     Indication: ADENOCARCINOMA
     Route: 048
     Dates: start: 20110128, end: 20120331
  5. XALKORI [Suspect]
     Indication: BLOOD ALKALINE PHOSPHATASE
     Route: 048
     Dates: end: 20130614
  6. XALKORI [Suspect]
     Indication: NON-SMALL CELL LUNG CANCER
     Route: 048
     Dates: end: 20130614
  7. XALKORI [Suspect]
     Indication: ADENOCARCINOMA
     Route: 048
     Dates: end: 20130614

REACTIONS (5)
  - Metastases to central nervous system [Fatal]
  - Anaphylactoid reaction [Unknown]
  - Oedema [Recovered/Resolved]
  - Photopsia [Recovered/Resolved]
  - Visual impairment [Unknown]
